FAERS Safety Report 15121420 (Version 1)
Quarter: 2018Q3

REPORT INFORMATION
  Report Type: Spontaneous
  Country: US (occurrence: US)
  Receive Date: 20180709
  Receipt Date: 20180709
  Transmission Date: 20181010
  Serious: Yes (Other)
  Sender: FDA-Public Use
  Company Number: US-SA-2018SA031861

PATIENT
  Age: 50 Year
  Sex: Female

DRUGS (7)
  1. TAXOTERE [Suspect]
     Active Substance: DOCETAXEL
     Indication: BREAST CANCER
     Dosage: 146.2 MG, Q3W
     Route: 051
     Dates: start: 20151026, end: 20151026
  2. TAXOTERE [Suspect]
     Active Substance: DOCETAXEL
     Dosage: 146.2 MG, Q3W
     Route: 051
     Dates: start: 20160208, end: 20160208
  3. PARAPLATIN [Concomitant]
     Active Substance: CARBOPLATIN
  4. PERJETA [Concomitant]
     Active Substance: PERTUZUMAB
  5. HERCEPTIN [Concomitant]
     Active Substance: TRASTUZUMAB
  6. CYMBALTA [Concomitant]
     Active Substance: DULOXETINE HYDROCHLORIDE
  7. HUMALOG [Concomitant]
     Active Substance: INSULIN LISPRO

REACTIONS (1)
  - Alopecia [Not Recovered/Not Resolved]

NARRATIVE: CASE EVENT DATE: 20160808
